FAERS Safety Report 17997221 (Version 1)
Quarter: 2020Q3

REPORT INFORMATION
  Report Type: Report from Study
  Country: None (occurrence: JP)
  Receive Date: 20200709
  Receipt Date: 20200709
  Transmission Date: 20201103
  Serious: Yes (Hospitalization)
  Sender: FDA-Public Use
  Company Number: JP-ABBVIE-18K-087-2435196-00

PATIENT
  Age: 75 Year
  Sex: Female
  Weight: 37.8 kg

DRUGS (12)
  1. DUODOPA [Suspect]
     Active Substance: CARBIDOPA\LEVODOPA
     Dosage: MD: 8.0 ML CD: 2.3 ML / HR ?16 HRS ED: 1.0 ML / TIME
     Route: 050
     Dates: start: 20180616, end: 20180619
  2. DUODOPA [Suspect]
     Active Substance: CARBIDOPA\LEVODOPA
     Dosage: MD: 8.5 ML?CD: 1.9 ML/HR ? 16 HRS?ED: 1.0 ML/UNIT ? 1 TO 2 TIMES
     Route: 050
     Dates: start: 20190326
  3. DUODOPA [Suspect]
     Active Substance: CARBIDOPA\LEVODOPA
     Dosage: MD: 4.0 ML CD: 1.8 ML / HR ?16 HRS ED: 1.0 ML / TIME
     Route: 050
     Dates: start: 20180611, end: 20180613
  4. CARBIDOPA MONOHYDRATE W/LEVODOPA [Concomitant]
     Active Substance: CARBIDOPA\LEVODOPA
     Indication: PARKINSON^S DISEASE
     Route: 048
     Dates: start: 20180622
  5. DUODOPA [Suspect]
     Active Substance: CARBIDOPA\LEVODOPA
     Dosage: MD: 6.0 ML CD: 2.1 ML / HR ?16 HRS ED: 1.0 ML / TIME
     Route: 050
     Dates: start: 20180614, end: 20180615
  6. DUODOPA [Suspect]
     Active Substance: CARBIDOPA\LEVODOPA
     Dosage: MD: 8.0 ML CD: 2.1 ML / HR ?16 HRS ED: 1.0 ML / TIME
     Route: 050
     Dates: start: 20180620, end: 20180621
  7. AMANTADINE HYDROCHLORIDE. [Concomitant]
     Active Substance: AMANTADINE HYDROCHLORIDE
     Indication: PARKINSON^S DISEASE
     Route: 048
     Dates: start: 20190520
  8. DUODOPA [Suspect]
     Active Substance: CARBIDOPA\LEVODOPA
     Dosage: MD: 4.0 ML CD: 1.5 ML / HR ?16 HRS ED: 1.0 ML / TIME
     Route: 050
     Dates: start: 20180604, end: 20180610
  9. DONEPEZIL HYDROCHLORIDE. [Concomitant]
     Active Substance: DONEPEZIL HYDROCHLORIDE
     Indication: PRODUCT USED FOR UNKNOWN INDICATION
     Route: 048
  10. DUODOPA [Suspect]
     Active Substance: CARBIDOPA\LEVODOPA
     Dosage: MD: 8.0 ML CD:1.9 ML / HR ?16 HRS ED: 1.0 ML / TIME
     Route: 050
     Dates: start: 20180622, end: 20180819
  11. DUODOPA [Suspect]
     Active Substance: CARBIDOPA\LEVODOPA
     Indication: PARKINSON^S DISEASE
     Dosage: MD: 4.0 ML CD: 1.2 ML / HR ?16 HRS ED: 1.0 ML / TIME
     Route: 050
     Dates: start: 20180530, end: 20180603
  12. DUODOPA [Suspect]
     Active Substance: CARBIDOPA\LEVODOPA
     Dosage: MD: 8.0 ML CD: 1.9 ML/HR ? 16HRS
     Route: 050
     Dates: start: 20180912, end: 20190326

REACTIONS (11)
  - Fall [Unknown]
  - Device kink [Recovered/Resolved]
  - Weight decreased [Unknown]
  - Vomiting [Unknown]
  - Dyskinesia [Recovering/Resolving]
  - Intussusception [Recovering/Resolving]
  - Bezoar [Unknown]
  - Device physical property issue [Recovered/Resolved]
  - Muscular weakness [Unknown]
  - Abdominal pain [Recovering/Resolving]
  - Device occlusion [Unknown]

NARRATIVE: CASE EVENT DATE: 20180616
